FAERS Safety Report 21108452 (Version 5)
Quarter: 2022Q3

REPORT INFORMATION
  Report Type: Other
  Country: US (occurrence: None)
  Receive Date: 20220721
  Receipt Date: 20220826
  Transmission Date: 20221027
  Serious: No
  Sender: FDA-Public Use
  Company Number: US-ROCHE-3144319

PATIENT
  Age: 57 Year
  Sex: Female

DRUGS (12)
  1. OCREVUS [Suspect]
     Active Substance: OCRELIZUMAB
     Indication: Secondary progressive multiple sclerosis
     Dosage: DATE OF TREATMENT : 28/JAN/2022
     Route: 042
     Dates: start: 201711
  2. PAXLOVID [Concomitant]
     Active Substance: NIRMATRELVIR\RITONAVIR
  3. IBUPROFEN [Concomitant]
     Active Substance: IBUPROFEN
  4. PREDNISONE [Concomitant]
     Active Substance: PREDNISONE
  5. SINGULAIR [Concomitant]
     Active Substance: MONTELUKAST SODIUM
  6. CEFTIN [Concomitant]
     Active Substance: CEFUROXIME AXETIL
  7. BETASERON [Concomitant]
     Active Substance: INTERFERON BETA-1B
  8. PROVENTIL [Concomitant]
     Active Substance: ALBUTEROL
  9. SYMBICORT [Concomitant]
     Active Substance: BUDESONIDE\FORMOTEROL FUMARATE DIHYDRATE
  10. FLEXERIL [Concomitant]
     Active Substance: CYCLOBENZAPRINE HYDROCHLORIDE
  11. ZANAFLEX [Concomitant]
     Active Substance: TIZANIDINE HYDROCHLORIDE
  12. MODAFINIL [Concomitant]
     Active Substance: MODAFINIL

REACTIONS (2)
  - SARS-CoV-2 test positive [Recovered/Resolved]
  - Muscle disorder [Recovered/Resolved]

NARRATIVE: CASE EVENT DATE: 20220716
